FAERS Safety Report 18556301 (Version 1)
Quarter: 2020Q4

REPORT INFORMATION
  Report Type: Spontaneous
  Country: US (occurrence: US)
  Receive Date: 20201128
  Receipt Date: 20201128
  Transmission Date: 20210114
  Serious: No
  Sender: FDA-Public Use
  Company Number: US-GLAXOSMITHKLINE-US2020AMR229310

PATIENT
  Age: 30 Year
  Sex: Female

DRUGS (1)
  1. MEPOLIZUMAB [Suspect]
     Active Substance: MEPOLIZUMAB
     Indication: ASTHMA
     Dosage: 100 MG, CYC
     Route: 058

REACTIONS (4)
  - Nausea [Not Recovered/Not Resolved]
  - Hepatomegaly [Unknown]
  - Splenomegaly [Unknown]
  - Vomiting [Not Recovered/Not Resolved]
